FAERS Safety Report 21518203 (Version 1)
Quarter: 2022Q4

REPORT INFORMATION
  Report Type: Other
  Country: JP (occurrence: None)
  Receive Date: 20221028
  Receipt Date: 20221028
  Transmission Date: 20230113
  Serious: Yes (Other)
  Sender: FDA-Public Use
  Company Number: JP-ROCHE-3207463

PATIENT
  Age: 71 Year
  Sex: Male
  Weight: 56.5 kg

DRUGS (6)
  1. ALECTINIB [Suspect]
     Active Substance: ALECTINIB
     Indication: Lung adenocarcinoma
     Route: 065
  2. METHYLPREDNISOLONE [Concomitant]
     Active Substance: METHYLPREDNISOLONE
     Dosage: FOR 3 DAYS
  3. CRIZOTINIB [Concomitant]
     Active Substance: CRIZOTINIB
  4. LORLATINIB [Concomitant]
     Active Substance: LORLATINIB
  5. BRIGATINIB [Concomitant]
     Active Substance: BRIGATINIB
     Dosage: THE FIRST 7 DAYS
  6. BRIGATINIB [Concomitant]
     Active Substance: BRIGATINIB

REACTIONS (2)
  - Oesophageal stenosis [Recovered/Resolved]
  - Disease progression [Unknown]
